FAERS Safety Report 7475221-4 (Version None)
Quarter: 2011Q2

REPORT INFORMATION
  Report Type: 
  Country: None (occurrence: None)
  Receive Date: 20110512
  Receipt Date: 20110428
  Transmission Date: 20111010
  Serious: Yes (Hospitalization, Other)
  Sender: FDA-Public Use
  Company Number: US-ELI_LILLY_AND_COMPANY-US201102003433

PATIENT
  Sex: Male

DRUGS (2)
  1. FORTEO [Suspect]
     Dosage: 20 UG, QD
  2. FORTEO [Suspect]
     Indication: OSTEOPOROSIS
     Dosage: 20 UG, QD
     Dates: start: 20110104

REACTIONS (5)
  - DIABETIC COMA [None]
  - INJECTION SITE HAEMORRHAGE [None]
  - MEMORY IMPAIRMENT [None]
  - DRUG DOSE OMISSION [None]
  - STRESS [None]
